FAERS Safety Report 20939983 (Version 1)
Quarter: 2022Q2

REPORT INFORMATION
  Report Type: Spontaneous
  Country: US (occurrence: None)
  Receive Date: 20220609
  Receipt Date: 20220609
  Transmission Date: 20220721
  Serious: Yes (Other)
  Sender: FDA-Public Use
  Company Number: None

PATIENT
  Age: 58 Year
  Sex: Male

DRUGS (1)
  1. CAPECITABINE [Suspect]
     Active Substance: CAPECITABINE
     Dosage: 1500MG BID ORAL?
     Route: 048
     Dates: start: 202202

REACTIONS (5)
  - Dysphagia [None]
  - Fatigue [None]
  - Decreased appetite [None]
  - Neuropathy peripheral [None]
  - Oesophageal stenosis [None]

NARRATIVE: CASE EVENT DATE: 20220609
